FAERS Safety Report 7792487-1 (Version None)
Quarter: 2011Q4

REPORT INFORMATION
  Report Type: 
  Country: None (occurrence: None)
  Receive Date: 20111003
  Receipt Date: 20110927
  Transmission Date: 20120403
  Serious: Yes (Other)
  Sender: FDA-Public Use
  Company Number: FR-PFIZER INC-2011229320

PATIENT
  Age: 52 Year
  Sex: Female

DRUGS (11)
  1. LIORESAL [Concomitant]
  2. LYRICA [Concomitant]
     Indication: MULTIPLE SCLEROSIS
  3. COPAXONE [Concomitant]
     Indication: MULTIPLE SCLEROSIS
  4. CYCLOPHOSPHAMIDE [Suspect]
     Dosage: ONCE EVERY 2 MONTHS
     Route: 042
     Dates: start: 20100901, end: 20110301
  5. SOLU-MEDROL [Suspect]
     Dosage: UNK
     Route: 042
     Dates: start: 20090901, end: 20110301
  6. LEVOTHYROXINE SODIUM [Concomitant]
  7. REBIF [Concomitant]
     Indication: MULTIPLE SCLEROSIS
  8. UROMITEXAN [Suspect]
     Dosage: UNK
     Route: 042
     Dates: start: 20090901, end: 20110301
  9. AVONEX [Concomitant]
     Indication: MULTIPLE SCLEROSIS
  10. CYCLOPHOSPHAMIDE [Suspect]
     Dosage: ONCE MONTHLY
     Route: 042
     Dates: start: 20090901, end: 20100901
  11. NEURONTIN [Concomitant]

REACTIONS (1)
  - FIXED ERUPTION [None]
